FAERS Safety Report 7685085-1 (Version None)
Quarter: 2011Q3

REPORT INFORMATION
  Report Type: 
  Country: None (occurrence: None)
  Receive Date: 20110729
  Receipt Date: 20110720
  Transmission Date: 20111222
  Serious: Yes (Hospitalization)
  Sender: FDA-Public Use
  Company Number: M2011-023

PATIENT
  Age: 44 Year
  Sex: Male

DRUGS (7)
  1. ZOCOR [Concomitant]
  2. ALLERGRA, VERAMYST [Concomitant]
  3. ALLERGENIC EXTRACTS [Suspect]
     Indication: HYPERSENSITIVITY
     Dosage: SEE IMAGE
  4. ALLERGENIC EXTRACTS [Suspect]
     Indication: HYPERSENSITIVITY
     Dosage: SEE IMAGE
  5. ALLERGENIC EXTRACTS [Suspect]
     Indication: HYPERSENSITIVITY
     Dosage: SEE IMAGE
  6. ALLERGENIC EXTRACTS [Suspect]
     Indication: HYPERSENSITIVITY
     Dosage: SEE IMAGE
  7. ZOLOFT [Concomitant]

REACTIONS (7)
  - HEART RATE INCREASED [None]
  - FEELING HOT [None]
  - THROAT TIGHTNESS [None]
  - INJECTION SITE URTICARIA [None]
  - ERYTHEMA [None]
  - PALPITATIONS [None]
  - MALAISE [None]
